FAERS Safety Report 18359212 (Version 2)
Quarter: 2020Q4

REPORT INFORMATION
  Report Type: Report from Study
  Country: CA (occurrence: CA)
  Receive Date: 20201008
  Receipt Date: 20201120
  Transmission Date: 20210114
  Serious: Yes (Other)
  Sender: FDA-Public Use
  Company Number: CA-B.I. PHARMACEUTICALS,INC./RIDGEFIELD-2020-BI-053256

PATIENT
  Age: 80 Year
  Sex: Female

DRUGS (2)
  1. CODEINE [Concomitant]
     Active Substance: CODEINE
     Indication: COUGH
     Route: 065
  2. OFEV [Suspect]
     Active Substance: NINTEDANIB
     Indication: IDIOPATHIC PULMONARY FIBROSIS
     Dosage: 200 MG
     Route: 048
     Dates: start: 20200402, end: 20200903

REACTIONS (1)
  - Illness [Not Recovered/Not Resolved]
